FAERS Safety Report 14427126 (Version 2)
Quarter: 2019Q1

REPORT INFORMATION
  Report Type: Spontaneous
  Country: US (occurrence: US)
  Receive Date: 20180123
  Receipt Date: 20190303
  Transmission Date: 20190417
  Serious: No
  Sender: FDA-Public Use
  Company Number: US-IMPAX LABORATORIES, INC-2017-IPXL-03151

PATIENT
  Age: 80 Year
  Sex: Female

DRUGS (1)
  1. RYTARY [Suspect]
     Active Substance: CARBIDOPA\LEVODOPA
     Indication: PARKINSON^S DISEASE
     Dosage: 61.25/245 MG, ONE CAPSULE, FOUR TIMES DAILY
     Route: 048
     Dates: start: 201708, end: 2017

REACTIONS (5)
  - Dysgraphia [Unknown]
  - Drug ineffective [Unknown]
  - Somnolence [Unknown]
  - Sleep disorder [Unknown]
  - Tremor [Unknown]

NARRATIVE: CASE EVENT DATE: 2017
